FAERS Safety Report 8068049-8 (Version None)
Quarter: 2012Q1

REPORT INFORMATION
  Report Type: 
  Country: None (occurrence: None)
  Receive Date: 20120124
  Receipt Date: 20110927
  Transmission Date: 20120608
  Serious: No
  Sender: FDA-Public Use
  Company Number: US-AMGEN-USASP2011049818

PATIENT
  Age: 74 Year
  Sex: Female

DRUGS (11)
  1. MULTIVITAMIN                       /00097801/ [Concomitant]
  2. PULMICORT-100 [Concomitant]
     Dosage: UNK
  3. LORAZEPAM [Concomitant]
  4. DILTIAZEM [Concomitant]
  5. ALBUTEROL [Concomitant]
     Dosage: 4 UNK, UNK
  6. CALCIUM WITH VITAMIN D             /00944201/ [Concomitant]
  7. PRILOSEC [Concomitant]
  8. PROLIA [Suspect]
     Indication: OSTEOPOROSIS POSTMENOPAUSAL
     Route: 058
     Dates: start: 20110721
  9. CARAFATE [Concomitant]
  10. CLARITIN                           /00413701/ [Concomitant]
  11. VITAMIN C                          /00008001/ [Concomitant]

REACTIONS (4)
  - ONYCHOMADESIS [None]
  - BACK PAIN [None]
  - PAIN IN EXTREMITY [None]
  - BLISTER [None]
